FAERS Safety Report 17307084 (Version 2)
Quarter: 2020Q1

REPORT INFORMATION
  Report Type: Spontaneous
  Country: FR (occurrence: FR)
  Receive Date: 20200123
  Receipt Date: 20200311
  Transmission Date: 20200409
  Serious: Yes (Life-Threatening, Hospitalization)
  Sender: FDA-Public Use
  Company Number: FR-MYLANLABS-2020M1006633

PATIENT
  Age: 1 Month
  Sex: Female
  Weight: 3.81 kg

DRUGS (3)
  1. SUFENTANIL MYLAN [Suspect]
     Active Substance: SUFENTANIL
     Indication: SEDATION
     Dosage: UNK
     Route: 041
     Dates: start: 20190830
  2. MIDAZOLAM MYLAN [Suspect]
     Active Substance: MIDAZOLAM HYDROCHLORIDE
     Indication: SEDATION
     Dosage: UNK
     Route: 041
     Dates: start: 20190830
  3. BURINEX [Suspect]
     Active Substance: BUMETANIDE
     Indication: POSTOPERATIVE PATHOLOGICAL DIURESIS
     Dosage: UNK
     Route: 041
     Dates: start: 20190830

REACTIONS (8)
  - Activated partial thromboplastin time prolonged [Recovered/Resolved]
  - Hypotension [Recovered/Resolved]
  - Cerebral haemorrhage [Recovering/Resolving]
  - Acute kidney injury [Recovered/Resolved]
  - Medication error [Recovered/Resolved]
  - Device programming error [Recovered/Resolved]
  - Incorrect drug administration rate [Recovered/Resolved]
  - Incorrect dose administered by device [Recovered/Resolved]

NARRATIVE: CASE EVENT DATE: 20190830
